FAERS Safety Report 4611095-4 (Version None)
Quarter: 2005Q2

REPORT INFORMATION
  Report Type: 
  Country: None (occurrence: None)
  Receive Date: 20050314
  Receipt Date: 20041102
  Transmission Date: 20051028
  Serious: Yes (Death, Life-Threatening)
  Sender: FDA-Public Use
  Company Number: USA040875801

PATIENT
  Age: 55 Year
  Sex: Female
  Weight: 45 kg

DRUGS (2)
  1. GEMZAR [Suspect]
     Indication: OVARIAN CANCER METASTATIC
     Dosage: 400 MG
     Dates: start: 20040615, end: 20040817
  2. CISPLATIN [Concomitant]

REACTIONS (6)
  - COLD SWEAT [None]
  - FEELING HOT AND COLD [None]
  - FLUSHING [None]
  - JUGULAR VEIN DISTENSION [None]
  - METASTATIC NEOPLASM [None]
  - RASH [None]
